FAERS Safety Report 6902117-6 (Version None)
Quarter: 2010Q3

REPORT INFORMATION
  Report Type: 
  Country: None (occurrence: None)
  Receive Date: 20100803
  Receipt Date: 20080421
  Transmission Date: 20110219
  Serious: No
  Sender: FDA-Public Use
  Company Number: US-PFIZER INC-2008017248

PATIENT
  Sex: Male
  Weight: 86.6 kg

DRUGS (10)
  1. LYRICA [Suspect]
     Indication: NEURALGIA
     Route: 048
     Dates: start: 20080215, end: 20080215
  2. TOPROL-XL [Concomitant]
     Route: 048
  3. METFORMIN HCL [Concomitant]
     Route: 048
  4. LUNESTA [Concomitant]
     Route: 048
  5. KLONOPIN [Concomitant]
     Route: 048
  6. TRAZODONE [Concomitant]
     Route: 048
  7. BETOPTIC [Concomitant]
     Route: 048
  8. CITALOPRAM [Concomitant]
     Route: 048
  9. OXYCODONE [Concomitant]
     Route: 048
  10. CIPROFLOXACIN [Concomitant]
     Route: 048

REACTIONS (3)
  - BLOOD CREATINE PHOSPHOKINASE INCREASED [None]
  - PAIN [None]
  - TACHYCARDIA [None]
